FAERS Safety Report 7085525-5 (Version None)
Quarter: 2010Q4

REPORT INFORMATION
  Report Type: 
  Country: None (occurrence: None)
  Receive Date: 20101105
  Receipt Date: 20101102
  Transmission Date: 20110411
  Serious: Yes (Other)
  Sender: FDA-Public Use
  Company Number: ES-PFIZER INC-2010139681

PATIENT
  Age: 66 Year
  Sex: Male

DRUGS (2)
  1. LOPID [Suspect]
     Indication: HYPERCHOLESTEROLAEMIA
     Dosage: 900 MG, 1X/DAY
     Route: 048
     Dates: start: 20080101, end: 20100601
  2. EZETROL [Interacting]
     Indication: HYPERCHOLESTEROLAEMIA
     Dosage: 10 MG, 1X/DAY
     Route: 048
     Dates: start: 20080101, end: 20100601

REACTIONS (2)
  - ABDOMINAL PAIN UPPER [None]
  - DRUG INTERACTION [None]
